FAERS Safety Report 8163828-0 (Version None)
Quarter: 2012Q1

REPORT INFORMATION
  Report Type: 
  Country: None (occurrence: None)
  Receive Date: 20120103
  Receipt Date: 20111121
  Transmission Date: 20120608
  Serious: No
  Sender: FDA-Public Use
  Company Number: AE-2011-003829

PATIENT
  Age: 25 Year
  Sex: Female
  Weight: 57.1532 kg

DRUGS (3)
  1. RIBASPHERE [Concomitant]
  2. PEGASYS [Concomitant]
  3. INCIVEK [Suspect]
     Dosage: 2250 MG (750 MG,3 IN 1 D),ORAL
     Route: 048
     Dates: start: 20110910

REACTIONS (1)
  - DRUG DOSE OMISSION [None]
